FAERS Safety Report 10269989 (Version 1)
Quarter: 2014Q3

REPORT INFORMATION
  Report Type: Spontaneous
  Country: AU (occurrence: AU)
  Receive Date: 20140701
  Receipt Date: 20140701
  Transmission Date: 20150326
  Serious: Yes (Disabling)
  Sender: FDA-Public Use
  Company Number: AU-SA-2014SA086314

PATIENT
  Age: 24 Year
  Sex: Female

DRUGS (13)
  1. OSTELIN CALCIUM AND VITAMIN D [Suspect]
     Active Substance: CALCIUM\CHOLECALCIFEROL
     Route: 065
  2. NEXIUM [Concomitant]
     Active Substance: ESOMEPRAZOLE MAGNESIUM
  3. PENGESIC [Concomitant]
     Route: 060
  4. RISEDRONATE SODIUM. [Suspect]
     Active Substance: RISEDRONATE SODIUM
     Route: 065
     Dates: start: 20140514
  5. SULFASALAZINE. [Concomitant]
     Active Substance: SULFASALAZINE
  6. VITAMIN C [Concomitant]
     Active Substance: ASCORBIC ACID
  7. FEXOFENADINE [Suspect]
     Active Substance: FEXOFENADINE\FEXOFENADINE HYDROCHLORIDE
     Route: 065
  8. VITAMIN B12 [Concomitant]
     Active Substance: CYANOCOBALAMIN
  9. NORSPAN [Concomitant]
     Active Substance: BUPRENORPHINE
  10. MIRTAZAPINE. [Concomitant]
     Active Substance: MIRTAZAPINE
  11. DOMPERIDONE [Concomitant]
     Active Substance: DOMPERIDONE
  12. PREGABALIN. [Concomitant]
     Active Substance: PREGABALIN
  13. PARACETAMOL [Concomitant]
     Active Substance: ACETAMINOPHEN

REACTIONS (4)
  - Weight bearing difficulty [Recovered/Resolved]
  - Gastrooesophageal reflux disease [Recovered/Resolved]
  - Osteoporosis [Recovered/Resolved]
  - Pain [Recovered/Resolved]

NARRATIVE: CASE EVENT DATE: 20140514
